FAERS Safety Report 8842103 (Version 1)
Quarter: 2012Q4

REPORT INFORMATION
  Report Type: Spontaneous
  Country: US (occurrence: None)
  Receive Date: 20121015
  Receipt Date: 20121015
  Transmission Date: 20130627
  Serious: Yes (Hospitalization)
  Sender: FDA-Public Use
  Company Number: None

PATIENT
  Age: 23 Year
  Sex: Female
  Weight: 73.48 kg

DRUGS (2)
  1. MIRENA [Suspect]
     Indication: BIRTH CONTROL
     Dosage: 1 iud
     Dates: start: 20091109, end: 20091203
  2. MIRENA IUD [Concomitant]

REACTIONS (2)
  - Device dislocation [None]
  - Uterine pain [None]
